FAERS Safety Report 10032424 (Version 1)
Quarter: 2014Q1

REPORT INFORMATION
  Report Type: Spontaneous
  Country: AT (occurrence: None)
  Receive Date: 20140320
  Receipt Date: 20140320
  Transmission Date: 20141002
  Serious: No
  Sender: FDA-Public Use
  Company Number: B0976713A

PATIENT
  Age: 38 Year
  Sex: Male

DRUGS (10)
  1. PAROXETINE HYDROCHLORIDE (FORMULATION UNKNOWN) (PAROXETINE HYDROCHLORIDE) [Suspect]
     Indication: PRODUCT USED FOR UNKNOWN INDICATION
     Dates: start: 20110318, end: 20140219
  2. OLANZAPINE [Suspect]
     Indication: PRODUCT USED FOR UNKNOWN INDICATION
     Dosage: VARIABLE DOSE
     Dates: start: 20140206
  3. CLOBAZAM [Suspect]
     Indication: PRODUCT USED FOR UNKNOWN INDICATION
     Dates: start: 20140207, end: 20140211
  4. ENAPRIL [Concomitant]
  5. MOTRIM [Concomitant]
  6. CYPROTERONE ACETATE [Concomitant]
  7. UASYN [Concomitant]
  8. TOPIRAMATE [Concomitant]
  9. THYROXINE SODIUM [Concomitant]
  10. LEVETIRACETAM [Concomitant]

REACTIONS (1)
  - Priapism [None]
